FAERS Safety Report 23084266 (Version 1)
Quarter: 2023Q4

REPORT INFORMATION
  Report Type: Spontaneous
  Country: US (occurrence: None)
  Receive Date: 20231018
  Receipt Date: 20231018
  Transmission Date: 20240109
  Serious: No
  Sender: FDA-Public Use
  Company Number: None

PATIENT
  Age: 65 Year
  Sex: Female
  Weight: 122.47 kg

DRUGS (1)
  1. TALTZ [Suspect]
     Active Substance: IXEKIZUMAB
     Indication: Psoriasis
     Dosage: OTHER FREQUENCY : ATWKASASDIR;?INJECT S0MG (1 PEN) SUBCUTANEOUSLY AT WEEK 12 AS DIRECTED. I?UNIT?
     Route: 058
     Dates: start: 202309

REACTIONS (1)
  - Knee arthroplasty [None]
